FAERS Safety Report 19581822 (Version 1)
Quarter: 2021Q3

REPORT INFORMATION
  Report Type: Spontaneous
  Country: US (occurrence: US)
  Receive Date: 20210719
  Receipt Date: 20210719
  Transmission Date: 20211014
  Serious: No
  Sender: FDA-Public Use
  Company Number: US-EMERGENT BIOSOLUTIONS,-21000091SP

PATIENT

DRUGS (1)
  1. NARCAN [Suspect]
     Active Substance: NALOXONE HYDROCHLORIDE
     Indication: OVERDOSE

REACTIONS (6)
  - Feeling cold [Unknown]
  - Unintentional use for unapproved indication [Unknown]
  - Fatigue [Unknown]
  - Dizziness [Unknown]
  - Yawning [Unknown]
  - Somnolence [Unknown]
